APPROVED DRUG PRODUCT: DARIFENACIN
Active Ingredient: DARIFENACIN HYDROBROMIDE
Strength: EQ 7.5MG BASE
Dosage Form/Route: TABLET, EXTENDED RELEASE;ORAL
Application: A207302 | Product #001 | TE Code: AB
Applicant: MACLEODS PHARMACEUTICALS LTD
Approved: Jul 28, 2017 | RLD: No | RS: No | Type: RX